FAERS Safety Report 15408816 (Version 1)
Quarter: 2018Q3

REPORT INFORMATION
  Report Type: Spontaneous
  Country: CA (occurrence: CA)
  Receive Date: 20180920
  Receipt Date: 20180920
  Transmission Date: 20181010
  Serious: Yes (Other)
  Sender: FDA-Public Use
  Company Number: CA-ROCHE-2186731

PATIENT
  Age: 76 Year
  Sex: Female

DRUGS (34)
  1. ANAKINRA [Concomitant]
     Active Substance: ANAKINRA
     Route: 065
  2. HYDROMORPHONE [Concomitant]
     Active Substance: HYDROMORPHONE
  3. LASIX [Concomitant]
     Active Substance: FUROSEMIDE
  4. DIPHENHYDRAMINE. [Concomitant]
     Active Substance: DIPHENHYDRAMINE
  5. RESTASIS [Concomitant]
     Active Substance: CYCLOSPORINE
  6. RITUXAN [Concomitant]
     Active Substance: RITUXIMAB
     Route: 042
  7. ACTEMRA [Suspect]
     Active Substance: TOCILIZUMAB
     Indication: PRODUCT USED FOR UNKNOWN INDICATION
     Route: 065
  8. ENBREL [Suspect]
     Active Substance: ETANERCEPT
     Indication: RHEUMATOID ARTHRITIS
     Route: 065
  9. HYDROXYCHLOROQUINE [Suspect]
     Active Substance: HYDROXYCHLOROQUINE
     Indication: PRODUCT USED FOR UNKNOWN INDICATION
     Route: 065
  10. XELJANZ [Suspect]
     Active Substance: TOFACITINIB CITRATE
     Indication: PRODUCT USED FOR UNKNOWN INDICATION
     Route: 065
  11. DEXAMETHASONE. [Concomitant]
     Active Substance: DEXAMETHASONE
  12. KADIAN [Concomitant]
     Active Substance: MORPHINE SULFATE
     Route: 065
  13. ORENCIA [Suspect]
     Active Substance: ABATACEPT
     Indication: PRODUCT USED FOR UNKNOWN INDICATION
     Route: 065
  14. DILAUDID [Concomitant]
     Active Substance: HYDROMORPHONE HYDROCHLORIDE
  15. LOPERAMIDE [Concomitant]
     Active Substance: LOPERAMIDE
  16. NORFLEX [Concomitant]
     Active Substance: ORPHENADRINE CITRATE
  17. SYNTHROID [Concomitant]
     Active Substance: LEVOTHYROXINE SODIUM
  18. HUMIRA [Suspect]
     Active Substance: ADALIMUMAB
     Indication: PRODUCT USED FOR UNKNOWN INDICATION
     Route: 058
  19. METHOTREXATE. [Suspect]
     Active Substance: METHOTREXATE
     Indication: PRODUCT USED FOR UNKNOWN INDICATION
     Route: 065
  20. ACETAMINOPHEN. [Concomitant]
     Active Substance: ACETAMINOPHEN
  21. OMNARIS [Concomitant]
     Active Substance: CICLESONIDE
     Route: 065
  22. PANTOPRAZOLE SODIUM. [Concomitant]
     Active Substance: PANTOPRAZOLE SODIUM
  23. VAGIFEM [Concomitant]
     Active Substance: ESTRADIOL
     Route: 065
  24. ARAVA [Suspect]
     Active Substance: LEFLUNOMIDE
     Indication: PRODUCT USED FOR UNKNOWN INDICATION
     Route: 065
  25. ATIVAN [Concomitant]
     Active Substance: LORAZEPAM
  26. ATIVAN [Concomitant]
     Active Substance: LORAZEPAM
  27. DESOXIMETASONE. [Concomitant]
     Active Substance: DESOXIMETASONE
  28. ENABLEX [Concomitant]
     Active Substance: DARIFENACIN HYDROBROMIDE
     Route: 065
  29. OXYNEO [Concomitant]
     Active Substance: OXYCODONE
     Route: 065
  30. TRIMETHOPRIM. [Concomitant]
     Active Substance: TRIMETHOPRIM
     Route: 065
  31. SODIUM AUROTHIOMALATE [Suspect]
     Active Substance: GOLD SODIUM THIOMALATE
     Indication: PRODUCT USED FOR UNKNOWN INDICATION
     Route: 065
  32. CODEINE [Concomitant]
     Active Substance: CODEINE
  33. HYDROXYCHLOROQUINE [Suspect]
     Active Substance: HYDROXYCHLOROQUINE
     Route: 065
  34. KENALOG (CANADA) [Concomitant]
     Route: 014

REACTIONS (16)
  - Anaemia [Unknown]
  - Peripheral swelling [Unknown]
  - Pneumonia viral [Unknown]
  - Drug ineffective [Unknown]
  - Herpes zoster [Unknown]
  - Infection [Unknown]
  - Leukopenia [Unknown]
  - Arthritis [Unknown]
  - Blood cholesterol increased [Unknown]
  - Drug effect incomplete [Unknown]
  - Joint swelling [Unknown]
  - Soft tissue disorder [Unknown]
  - Synovitis [Unknown]
  - Arthralgia [Unknown]
  - Liver function test abnormal [Unknown]
  - Fibromyalgia [Unknown]
